FAERS Safety Report 23131766 (Version 7)
Quarter: 2024Q1

REPORT INFORMATION
  Report Type: Spontaneous
  Country: DE (occurrence: DE)
  Receive Date: 20231031
  Receipt Date: 20240314
  Transmission Date: 20240410
  Serious: Yes (Life-Threatening, Other)
  Sender: FDA-Public Use
  Company Number: DE-AMGEN-DEUNI2023089328

PATIENT
  Age: 62 Year
  Sex: Female
  Weight: 81 kg

DRUGS (15)
  1. CARFILZOMIB [Suspect]
     Active Substance: CARFILZOMIB
     Dosage: 46.71 MG (REDUCED SINCE CYCLE 5)
     Route: 065
  2. CARFILZOMIB [Suspect]
     Active Substance: CARFILZOMIB
     Dosage: 62.28 MG, (REDUCED SINCE CYCLE 4)
     Route: 065
  3. CARFILZOMIB [Suspect]
     Active Substance: CARFILZOMIB
     Dosage: 77.85 MG, (REDUCED SINCE CYCLE 3)
     Route: 065
     Dates: start: 2023
  4. CARFILZOMIB [Suspect]
     Active Substance: CARFILZOMIB
     Indication: Plasma cell myeloma
     Dosage: 96.88 MG
     Route: 065
  5. CARFILZOMIB [Suspect]
     Active Substance: CARFILZOMIB
     Dosage: 96.88 MG
     Route: 065
     Dates: start: 20230420, end: 20230428
  6. CARFILZOMIB [Suspect]
     Active Substance: CARFILZOMIB
     Dosage: UNK(CARFILZOMIB REDUCED AS OF CYCLE 3)
     Route: 065
     Dates: start: 20230420, end: 20230428
  7. CARFILZOMIB [Suspect]
     Active Substance: CARFILZOMIB
     Dosage: UNK(CARFILZOMIB REDUCED AS OF CYCLE 3)
     Route: 065
     Dates: start: 2023
  8. DEXAMETHASONE [Suspect]
     Active Substance: DEXAMETHASONE
     Indication: Plasma cell myeloma
     Dosage: 20 MG
     Route: 065
     Dates: start: 20191107, end: 20200114
  9. DEXAMETHASONE [Suspect]
     Active Substance: DEXAMETHASONE
     Dosage: 20 MG
     Route: 065
     Dates: start: 20230419, end: 20230504
  10. DARATUMUMAB [Suspect]
     Active Substance: DARATUMUMAB
     Indication: Plasma cell myeloma
     Dosage: 1136 MG
     Route: 065
     Dates: start: 20230419
  11. DARATUMUMAB [Suspect]
     Active Substance: DARATUMUMAB
     Dosage: 1136 MG
     Route: 065
     Dates: start: 20230427, end: 20230511
  12. DENOSUMAB [Suspect]
     Active Substance: DENOSUMAB
     Indication: Plasma cell myeloma
     Dosage: 120 MG
     Route: 065
     Dates: start: 20230419
  13. DENOSUMAB [Suspect]
     Active Substance: DENOSUMAB
     Dosage: 120 MG
     Route: 065
     Dates: start: 20230427
  14. FILGRASTIM [Concomitant]
     Active Substance: FILGRASTIM
     Indication: Product used for unknown indication
     Dosage: 48 MICRO INTERNATIONAL UNIT, QD
     Route: 058
     Dates: start: 20240216, end: 20240217
  15. CERTOPARIN SODIUM [Concomitant]
     Active Substance: CERTOPARIN SODIUM
     Indication: Product used for unknown indication
     Dosage: 3000 INTERNATIONAL UNIT, QD
     Route: 058
     Dates: start: 20240214, end: 20240216

REACTIONS (1)
  - Thrombocytopenia [Not Recovered/Not Resolved]

NARRATIVE: CASE EVENT DATE: 20230504
